FAERS Safety Report 19198254 (Version 1)
Quarter: 2021Q2

REPORT INFORMATION
  Report Type: Spontaneous
  Country: BR (occurrence: BR)
  Receive Date: 20210430
  Receipt Date: 20210430
  Transmission Date: 20210717
  Serious: Yes (Other)
  Sender: FDA-Public Use
  Company Number: BR-JNJFOC-20210450621

PATIENT
  Age: 2 Year
  Sex: Female

DRUGS (1)
  1. REMICADE [Suspect]
     Active Substance: INFLIXIMAB
     Indication: INFLAMMATORY BOWEL DISEASE
     Route: 042

REACTIONS (5)
  - Cyanosis central [Unknown]
  - Hypoperfusion [Unknown]
  - Off label use [Unknown]
  - Infusion related reaction [Unknown]
  - Product administered to patient of inappropriate age [Unknown]

NARRATIVE: CASE EVENT DATE: 202104
